FAERS Safety Report 9016358 (Version 3)
Quarter: 2013Q2

REPORT INFORMATION
  Report Type: Report from Study
  Country: RU (occurrence: RU)
  Receive Date: 20130116
  Receipt Date: 20130416
  Transmission Date: 20140414
  Serious: Yes (Death)
  Sender: FDA-Public Use
  Company Number: RU-BRISTOL-MYERS SQUIBB COMPANY-17267519

PATIENT
  Age: 50 Year
  Sex: Male
  Weight: 79 kg

DRUGS (5)
  1. CARBOPLATIN [Suspect]
     Indication: NON-SMALL CELL LUNG CANCER
     Dosage: 1DF=6AUC?6 AUC ON D3 OF 21D CYCLE
     Route: 042
     Dates: start: 20121116, end: 20121116
  2. PACLITAXEL [Suspect]
     Indication: NON-SMALL CELL LUNG CANCER
     Dosage: ON D3 OF 21D CYCLE
     Route: 042
     Dates: start: 20121116, end: 20121116
  3. RANITIDINE [Concomitant]
     Indication: PREMEDICATION
     Dates: start: 20121116, end: 20121116
  4. DIPHENHYDRAMINE [Concomitant]
     Indication: PREMEDICATION
     Dates: start: 20121116, end: 20121116
  5. ONDANSETRON [Concomitant]
     Indication: PREMEDICATION
     Dates: start: 20121116, end: 20121116

REACTIONS (1)
  - Gastrointestinal haemorrhage [Fatal]
